FAERS Safety Report 18584004 (Version 2)
Quarter: 2020Q4

REPORT INFORMATION
  Report Type: Report from Study
  Country: None (occurrence: US)
  Receive Date: 20201207
  Receipt Date: 20201224
  Transmission Date: 20210114
  Serious: Yes (Hospitalization)
  Sender: FDA-Public Use
  Company Number: US-ABBVIE-20K-163-3677967-00

PATIENT
  Sex: Female

DRUGS (2)
  1. HUMIRA [Suspect]
     Active Substance: ADALIMUMAB
     Route: 058
     Dates: start: 2020
  2. HUMIRA [Suspect]
     Active Substance: ADALIMUMAB
     Indication: RHEUMATOID ARTHRITIS
     Route: 058
     Dates: start: 20201026, end: 2020

REACTIONS (14)
  - Musculoskeletal stiffness [Unknown]
  - Headache [Unknown]
  - Peripheral swelling [Unknown]
  - Malaise [Unknown]
  - Gait inability [Unknown]
  - Blood electrolytes abnormal [Unknown]
  - Pain in extremity [Unknown]
  - Blood potassium decreased [Unknown]
  - Pain [Unknown]
  - Blood sodium decreased [Unknown]
  - Vomiting [Not Recovered/Not Resolved]
  - Diarrhoea [Not Recovered/Not Resolved]
  - Impaired gastric emptying [Unknown]
  - Arthralgia [Unknown]

NARRATIVE: CASE EVENT DATE: 2020
